FAERS Safety Report 11072950 (Version 2)
Quarter: 2015Q3

REPORT INFORMATION
  Report Type: Spontaneous
  Country: DE (occurrence: DE)
  Receive Date: 20150428
  Receipt Date: 20150723
  Transmission Date: 20151125
  Serious: Yes (Other)
  Sender: FDA-Public Use
  Company Number: DE-INCYTE CORPORATION-2015IN001762

PATIENT
  Sex: Male

DRUGS (10)
  1. CALCIUM [Concomitant]
     Active Substance: CALCIUM
     Indication: PRODUCT USED FOR UNKNOWN INDICATION
     Dosage: 500 MG, UNK (1-0-1-0)
     Route: 065
  2. JAKAFI [Suspect]
     Active Substance: RUXOLITINIB
     Indication: MUCOCUTANEOUS CANDIDIASIS
     Dosage: 20 MG, BID
     Route: 065
     Dates: start: 20141119, end: 20141120
  3. JAKAFI [Suspect]
     Active Substance: RUXOLITINIB
     Dosage: 10 MG, BID
     Route: 065
     Dates: start: 20150414
  4. PLANUM [Concomitant]
     Active Substance: DESOGESTREL\ETHINYL ESTRADIOL
     Indication: SLEEP DISORDER
     Route: 065
  5. OCTENIDOL [Concomitant]
     Indication: CANDIDA INFECTION
     Dosage: 1-1-1
     Route: 065
  6. JAKAFI [Suspect]
     Active Substance: RUXOLITINIB
     Dosage: 5 MG, BID
     Route: 065
     Dates: start: 20150312
  7. JAKAFI [Suspect]
     Active Substance: RUXOLITINIB
     Dosage: 15 MG (05 MG IN MORNING AND 10 MG IN EVENING)
     Route: 065
     Dates: start: 20150316
  8. RAMIPRIL. [Concomitant]
     Active Substance: RAMIPRIL
     Indication: HYPERTENSION
     Dosage: 2.5 MG, UNK (1-0-0)
     Route: 065
  9. VIGANTOL//COLECALCIFEROL [Concomitant]
     Indication: VITAMIN D DEFICIENCY
     Dosage: 20 MG, UNK (2-0-0)
     Route: 065
  10. NATAMYCIN [Concomitant]
     Active Substance: NATAMYCIN
     Indication: CANDIDA INFECTION
     Dosage: 1-0-1
     Route: 065

REACTIONS (4)
  - Anosmia [Unknown]
  - Iron deficiency anaemia [Recovering/Resolving]
  - Dysgeusia [Unknown]
  - Product use issue [Unknown]

NARRATIVE: CASE EVENT DATE: 20141119
